FAERS Safety Report 7028050-X (Version None)
Quarter: 2010Q4

REPORT INFORMATION
  Report Type: 
  Country: None (occurrence: None)
  Receive Date: 20101005
  Receipt Date: 20100927
  Transmission Date: 20110411
  Serious: Yes (Other)
  Sender: FDA-Public Use
  Company Number: JP-ELI_LILLY_AND_COMPANY-JP201009007351

PATIENT
  Sex: Male

DRUGS (12)
  1. HUMALOG MIX 50/50 [Suspect]
     Route: 058
  2. LIPITOR [Concomitant]
  3. ASPIRIN [Concomitant]
  4. BASEN [Concomitant]
  5. PLAVIX [Concomitant]
  6. PARIET [Concomitant]
  7. ARTIST [Concomitant]
  8. RENIVACE [Concomitant]
  9. MYSLEE [Concomitant]
  10. LOXONIN [Concomitant]
  11. SELBEX [Concomitant]
  12. SIGMART [Concomitant]

REACTIONS (1)
  - LUNG DISORDER [None]
